FAERS Safety Report 7277646-9 (Version None)
Quarter: 2010Q4

REPORT INFORMATION
  Report Type: 
  Country: None (occurrence: None)
  Receive Date: 20101215
  Receipt Date: 20100125
  Transmission Date: 20110411
  Serious: Yes (Other)
  Sender: FDA-Public Use
  Company Number: ENTC2010-0024

PATIENT
  Age: 69 Year
  Sex: Female

DRUGS (3)
  1. STALEVO 100 [Suspect]
     Indication: PARKINSON'S DISEASE
     Dosage: 100MG, QD, ORAL, 50 MG QD, ORAL
     Route: 048
     Dates: start: 20100117, end: 20100117
  2. STALEVO 100 [Suspect]
     Indication: PARKINSON'S DISEASE
     Dosage: 100MG, QD, ORAL, 50 MG QD, ORAL
     Route: 048
     Dates: start: 20100121
  3. AZILECT [Concomitant]

REACTIONS (1)
  - BLOOD PRESSURE INCREASED [None]
